FAERS Safety Report 16812526 (Version 1)
Quarter: 2019Q3

REPORT INFORMATION
  Report Type: Spontaneous
  Country: IT (occurrence: IT)
  Receive Date: 20190916
  Receipt Date: 20190916
  Transmission Date: 20191005
  Serious: Yes (Other)
  Sender: FDA-Public Use
  Company Number: IT-JNJFOC-20190909531

PATIENT
  Age: 83 Year
  Sex: Female

DRUGS (3)
  1. RIVAROXABAN [Suspect]
     Active Substance: RIVAROXABAN
     Indication: PRODUCT USED FOR UNKNOWN INDICATION
     Dosage: UNK
     Route: 048
     Dates: start: 2014
  2. DILTIAZEM. [Concomitant]
     Active Substance: DILTIAZEM
     Dosage: UNK
  3. PAROXETINE. [Concomitant]
     Active Substance: PAROXETINE
     Dosage: UNK

REACTIONS (6)
  - Fall [Unknown]
  - Hemiplegia [Recovering/Resolving]
  - Blindness unilateral [Unknown]
  - Subarachnoid haemorrhage [Unknown]
  - Embolic stroke [Unknown]
  - Vision blurred [Unknown]

NARRATIVE: CASE EVENT DATE: 20190805
